FAERS Safety Report 10803386 (Version 1)
Quarter: 2015Q1

REPORT INFORMATION
  Report Type: Spontaneous
  Country: US (occurrence: US)
  Receive Date: 20150217
  Receipt Date: 20150217
  Transmission Date: 20150721
  Serious: No
  Sender: FDA-Public Use
  Company Number: US-RECKITT BENCKISER PHARMACEUTICAL, INC-RB-67844-2014

PATIENT

DRUGS (2)
  1. SUBOXONE [Suspect]
     Active Substance: BUPRENORPHINE HYDROCHLORIDE\NALOXONE HYDROCHLORIDE
     Dosage: INITIALLY DOSES OF 1 OR 2 MG; THEN INCREASED DOSES, AND FINALLY CUTTING AND TAPERING DOWN
     Route: 060
  2. SUBOXONE [Suspect]
     Active Substance: BUPRENORPHINE HYDROCHLORIDE\NALOXONE HYDROCHLORIDE
     Indication: PRODUCT USED FOR UNKNOWN INDICATION
     Dosage: INITIALLY DOSES OF 1 OR 2 MG; THEN INCREASED DOSES, AND FINALLY CUTTING AND TAPERING DOWN
     Route: 060

REACTIONS (12)
  - Psychogenic pain disorder [Recovered/Resolved]
  - Back pain [Recovered/Resolved]
  - Intentional underdose [Not Recovered/Not Resolved]
  - Euphoric mood [Recovered/Resolved]
  - Depressed mood [Recovered/Resolved]
  - Pain [Recovered/Resolved]
  - Drug dependence [Not Recovered/Not Resolved]
  - Therapeutic response unexpected [Unknown]
  - Wrong technique in drug usage process [Not Recovered/Not Resolved]
  - Feeling hot [Recovered/Resolved]
  - Substance abuse [Recovered/Resolved]
  - Paraesthesia [Recovered/Resolved]
